FAERS Safety Report 25909937 (Version 1)
Quarter: 2025Q4

REPORT INFORMATION
  Report Type: Spontaneous
  Country: US (occurrence: US)
  Receive Date: 20251012
  Receipt Date: 20251012
  Transmission Date: 20260118
  Serious: No
  Sender: SANOFI AVENTIS
  Company Number: US-SA-2025SA302855

PATIENT
  Age: 73 Year
  Sex: Female

DRUGS (1)
  1. DUPIXENT [Suspect]
     Active Substance: DUPILUMAB
     Dosage: 300 MG, QOW
     Route: 058

REACTIONS (4)
  - Conjunctivitis [Unknown]
  - Vision blurred [Recovering/Resolving]
  - Eye pruritus [Recovered/Resolved]
  - Visual impairment [Recovering/Resolving]
